FAERS Safety Report 4811308-X (Version None)
Quarter: 2005Q4

REPORT INFORMATION
  Report Type: 
  Country: None (occurrence: None)
  Receive Date: 20051026
  Receipt Date: 20051026
  Transmission Date: 20060501
  Serious: Yes (Hospitalization)
  Sender: FDA-Public Use
  Company Number: None

PATIENT
  Sex: Male
  Weight: 82.7 kg

DRUGS (2)
  1. METHOTREXATE [Suspect]
     Indication: CENTRAL NERVOUS SYSTEM LYMPHOMA
     Dosage: 8MG/M2    DAY 1 + 15 Q CYCLE    IV DRIP
     Route: 041
     Dates: start: 20050914, end: 20051014
  2. THIOTEPA [Suspect]
     Indication: CENTRAL NERVOUS SYSTEM LYMPHOMA
     Dosage: 2MG/KG    DAY 15 Q CYCLE    IV DRIP
     Route: 041
     Dates: start: 20050928, end: 20050928

REACTIONS (11)
  - CHILLS [None]
  - DYSPNOEA EXERTIONAL [None]
  - EAR PAIN [None]
  - HAEMOGLOBIN DECREASED [None]
  - NASAL DISORDER [None]
  - NEUTROPHIL COUNT DECREASED [None]
  - PHARYNGOLARYNGEAL PAIN [None]
  - PLATELET COUNT DECREASED [None]
  - PYREXIA [None]
  - SINUS TACHYCARDIA [None]
  - WHITE BLOOD CELL COUNT DECREASED [None]
